FAERS Safety Report 5042259-6 (Version None)
Quarter: 2006Q2

REPORT INFORMATION
  Report Type: 
  Country: None (occurrence: None)
  Receive Date: 20060627
  Receipt Date: 20060612
  Transmission Date: 20061013
  Serious: Yes (Hospitalization, Other)
  Sender: FDA-Public Use
  Company Number: 2005143982

PATIENT
  Age: 55 Year
  Sex: Male
  Weight: 122.4712 kg

DRUGS (6)
  1. CELEBREX [Suspect]
     Indication: ARTHRITIS
     Dosage: 200 MG (200 MG, 1 IN 1 D), ORAL
     Route: 048
     Dates: start: 19960101, end: 20041201
  2. IBUPROFEN [Concomitant]
  3. NAPROXEN [Concomitant]
  4. ASPIRIN [Concomitant]
  5. PERCOCET [Concomitant]
  6. ACETAMINOPHEN [Concomitant]

REACTIONS (6)
  - AMNESIA [None]
  - CORONARY ARTERY OCCLUSION [None]
  - DEPRESSION [None]
  - ERECTILE DYSFUNCTION [None]
  - MYOCARDIAL INFARCTION [None]
  - PULMONARY EMBOLISM [None]
